FAERS Safety Report 9715814 (Version 6)
Quarter: 2014Q1

REPORT INFORMATION
  Report Type: Spontaneous
  Country: JP (occurrence: JP)
  Receive Date: 20131127
  Receipt Date: 20140206
  Transmission Date: 20141002
  Serious: Yes (Hospitalization, Other)
  Sender: FDA-Public Use
  Company Number: JP-ROCHE-1309194

PATIENT
  Age: 78 Year
  Sex: Male
  Weight: 49.03 kg

DRUGS (9)
  1. LUCENTIS [Suspect]
     Indication: AGE-RELATED MACULAR DEGENERATION
     Route: 050
     Dates: start: 20120907
  2. LUCENTIS [Suspect]
     Route: 050
     Dates: start: 20121015
  3. LUCENTIS [Suspect]
     Route: 050
     Dates: start: 20130903
  4. MOXIFLOXACIN HYDROCHLORIDE [Concomitant]
     Route: 065
     Dates: start: 20130831, end: 20131011
  5. BETAMETHASONE [Concomitant]
     Route: 065
     Dates: start: 20130904, end: 20131011
  6. BROMFENAC SODIUM [Concomitant]
     Route: 065
     Dates: start: 20120904, end: 20131102
  7. SEIBULE [Concomitant]
  8. REPAGLINIDE [Concomitant]
  9. LIPITOR [Concomitant]

REACTIONS (8)
  - Brain stem infarction [Recovering/Resolving]
  - Cerebral infarction [Unknown]
  - Cataract [Unknown]
  - Detachment of retinal pigment epithelium [Unknown]
  - Retinal detachment [Unknown]
  - Pallor [Unknown]
  - Dysphonia [Recovering/Resolving]
  - Choroidal neovascularisation [Unknown]
